FAERS Safety Report 9701370 (Version 2)
Quarter: 2013Q4

REPORT INFORMATION
  Report Type: Spontaneous
  Country: US (occurrence: US)
  Receive Date: 20131121
  Receipt Date: 20131121
  Transmission Date: 20140711
  Serious: No
  Sender: FDA-Public Use
  Company Number: US-GILEAD-2008-0016348

PATIENT
  Age: 66 Year
  Sex: Female

DRUGS (22)
  1. LETAIRIS [Suspect]
     Indication: PULMONARY ARTERIAL HYPERTENSION
     Dosage: X 4 DAYS
     Route: 048
     Dates: start: 20080425, end: 20080429
  2. LETAIRIS [Suspect]
     Route: 048
  3. NOVOLOG [Suspect]
     Route: 065
  4. ALBUTEROL [Concomitant]
     Route: 065
  5. ZYRTEC [Concomitant]
     Route: 065
  6. LANTUS [Concomitant]
     Route: 065
  7. CACITRATE [Concomitant]
     Route: 065
  8. ZOLPIDEM [Concomitant]
     Route: 065
  9. ZOCOR [Concomitant]
     Route: 065
  10. KCL [Concomitant]
     Route: 065
  11. COREG [Concomitant]
     Route: 065
  12. HCTZ [Concomitant]
     Route: 065
  13. TRAVATAN [Concomitant]
     Route: 065
  14. PRILOSEC [Concomitant]
     Route: 065
  15. NOVOLOG [Concomitant]
     Route: 065
  16. MVI [Concomitant]
     Route: 065
  17. ASA [Concomitant]
     Route: 065
  18. SINGULAIR [Concomitant]
     Route: 065
  19. NAPROXEN [Concomitant]
     Route: 065
  20. DILTIAZEM [Concomitant]
     Route: 065
  21. FUROSEMIDE [Concomitant]
     Route: 065
  22. AVALIDE [Concomitant]
     Route: 065

REACTIONS (2)
  - Asthenia [Recovered/Resolved]
  - Hyperventilation [Recovered/Resolved]
